FAERS Safety Report 8191141-4 (Version None)
Quarter: 2012Q1

REPORT INFORMATION
  Report Type: 
  Country: None (occurrence: None)
  Receive Date: 20120307
  Receipt Date: 20120301
  Transmission Date: 20120608
  Serious: Yes (Hospitalization)
  Sender: FDA-Public Use
  Company Number: DE-GLAXOSMITHKLINE-B0786053A

PATIENT
  Sex: Female

DRUGS (2)
  1. BLINDED TRIAL MEDICATION [Suspect]
     Indication: OVARIAN CANCER
     Route: 048
     Dates: start: 20120218
  2. TOPOTECAN [Suspect]
     Indication: OVARIAN CANCER
     Dosage: 1.25MG CYCLIC
     Route: 042
     Dates: start: 20120213

REACTIONS (1)
  - SYNCOPE [None]
